FAERS Safety Report 23534099 (Version 1)
Quarter: 2024Q1

REPORT INFORMATION
  Report Type: Spontaneous
  Country: AU (occurrence: AU)
  Receive Date: 20240216
  Receipt Date: 20240216
  Transmission Date: 20240409
  Serious: Yes (Other)
  Sender: FDA-Public Use
  Company Number: AU-009507513-2402AUS004683

PATIENT
  Age: 45 Year
  Sex: Male

DRUGS (7)
  1. KEYTRUDA [Suspect]
     Active Substance: PEMBROLIZUMAB
     Indication: Renal cell carcinoma
     Dosage: 200 MILLIGRAM, Q3W
     Route: 042
     Dates: start: 20230908, end: 20230908
  2. KEYTRUDA [Suspect]
     Active Substance: PEMBROLIZUMAB
     Dosage: 200 MILLIGRAM, Q3W
     Route: 042
     Dates: start: 20230929, end: 20230929
  3. KEYTRUDA [Suspect]
     Active Substance: PEMBROLIZUMAB
     Dosage: 200 MILLIGRAM, Q3W
     Route: 042
     Dates: start: 202311, end: 202311
  4. KEYTRUDA [Suspect]
     Active Substance: PEMBROLIZUMAB
     Dosage: 200 MILLIGRAM, Q3W
     Route: 042
  5. LENVATINIB MESYLATE [Suspect]
     Active Substance: LENVATINIB MESYLATE
     Indication: Renal cell carcinoma
     Dosage: 20 MILLIGRAM, QD
     Route: 048
     Dates: start: 20230908, end: 202312
  6. LENVATINIB MESYLATE [Suspect]
     Active Substance: LENVATINIB MESYLATE
     Dosage: 14 MILLIGRAM, QD
     Route: 048
     Dates: end: 202401
  7. PERINDOPRIL [Concomitant]
     Active Substance: PERINDOPRIL
     Indication: Blood pressure increased
     Dosage: 5 MILLIGRAM
     Dates: start: 202307

REACTIONS (21)
  - Malignant neoplasm progression [Unknown]
  - Hypothyroidism [Unknown]
  - Acute kidney injury [Unknown]
  - Immune-mediated hypothyroidism [Unknown]
  - Diarrhoea [Recovered/Resolved]
  - Rash pruritic [Unknown]
  - Thyroiditis [Unknown]
  - Diarrhoea [Unknown]
  - Headache [Unknown]
  - Hypercalcaemia [Recovered/Resolved]
  - Gamma-glutamyltransferase increased [Recovered/Resolved]
  - Blood alkaline phosphatase increased [Not Recovered/Not Resolved]
  - Thrombocytosis [Not Recovered/Not Resolved]
  - Mean cell volume decreased [Recovered/Resolved]
  - Mean cell haemoglobin decreased [Recovered/Resolved]
  - Mean platelet volume decreased [Recovered/Resolved]
  - Pain [Recovering/Resolving]
  - Red cell distribution width increased [Unknown]
  - Blood lactate dehydrogenase increased [Unknown]
  - White blood cell count increased [Unknown]
  - Neutrophilia [Unknown]

NARRATIVE: CASE EVENT DATE: 20230101
